FAERS Safety Report 24578421 (Version 1)
Quarter: 2024Q4

REPORT INFORMATION
  Report Type: Spontaneous
  Country: US (occurrence: US)
  Receive Date: 20241105
  Receipt Date: 20241105
  Transmission Date: 20250115
  Serious: No
  Sender: BIOGEN
  Company Number: US-BIOGEN-2023BI01201397

PATIENT
  Sex: Female

DRUGS (2)
  1. VUMERITY [Suspect]
     Active Substance: DIROXIMEL FUMARATE
     Indication: Multiple sclerosis
     Dosage: STARTER DOSE, FOR 7 DAYS
     Route: 050
     Dates: start: 20230411
  2. VUMERITY [Suspect]
     Active Substance: DIROXIMEL FUMARATE
     Dosage: THEN TAKE 2 CAPSULES, 462MG BY MOUTH TWICE A DAY THEREAFTER
     Route: 050
     Dates: start: 20230418

REACTIONS (2)
  - Headache [Unknown]
  - Flushing [Unknown]
